FAERS Safety Report 4396576-3 (Version None)
Quarter: 2004Q3

REPORT INFORMATION
  Report Type: 
  Country: None (occurrence: None)
  Receive Date: 20040712
  Receipt Date: 20040628
  Transmission Date: 20050211
  Serious: Yes (Hospitalization)
  Sender: FDA-Public Use
  Company Number: 03P-217-0240111-00

PATIENT
  Age: 68 Year
  Sex: Male
  Weight: 123 kg

DRUGS (7)
  1. MERIDIA [Suspect]
     Indication: OBESITY
     Dosage: 10 MG, 1 IN 1 D, ORAL
     Route: 048
     Dates: start: 20031011
  2. UROXATRAL [Concomitant]
  3. ISOSORBIDE MONONITRATE [Concomitant]
  4. PERINDOPRIL [Concomitant]
  5. ASPIRIN [Concomitant]
  6. ZOCOR [Concomitant]
  7. ALLOPURINOL [Concomitant]

REACTIONS (2)
  - URETHRAL STRICTURE [None]
  - URINARY RETENTION [None]
